FAERS Safety Report 18539312 (Version 1)
Quarter: 2020Q4

REPORT INFORMATION
  Report Type: Report from Study
  Country: NL (occurrence: NL)
  Receive Date: 20201124
  Receipt Date: 20201124
  Transmission Date: 20210114
  Serious: Yes (Other)
  Sender: FDA-Public Use
  Company Number: NL-B.I. PHARMACEUTICALS,INC./RIDGEFIELD-2020-BI-062779

PATIENT
  Age: 52 Year
  Sex: Male
  Weight: 73 kg

DRUGS (4)
  1. PLACEBO [Suspect]
     Active Substance: UNSPECIFIED INGREDIENT
     Indication: CARDIAC FAILURE ACUTE
     Dosage: DATE OF LAST ADMINISTRATION PRIOR TO EVENT: 28SEP2020
     Route: 048
     Dates: start: 20200914
  2. SPIRONOLACTONE. [Suspect]
     Active Substance: SPIRONOLACTONE
     Indication: CARDIAC FAILURE
     Dosage: 2XDAY 25MG
     Route: 065
     Dates: start: 20200912, end: 20200928
  3. BURINEX [Suspect]
     Active Substance: BUMETANIDE
     Indication: CARDIAC FAILURE
     Dosage: 2MG 2XDAY
     Route: 065
     Dates: start: 20200912, end: 20200928
  4. BURINEX [Suspect]
     Active Substance: BUMETANIDE
     Route: 065
     Dates: start: 20201016

REACTIONS (1)
  - Glomerular filtration rate decreased [Recovered/Resolved]

NARRATIVE: CASE EVENT DATE: 20200928
